FAERS Safety Report 8207187-3 (Version None)
Quarter: 2012Q1

REPORT INFORMATION
  Report Type: 
  Country: None (occurrence: None)
  Receive Date: 20120314
  Receipt Date: 20120312
  Transmission Date: 20120608
  Serious: No
  Sender: FDA-Public Use
  Company Number: US-PFIZER INC-2012065730

PATIENT
  Sex: Female
  Weight: 99.773 kg

DRUGS (2)
  1. QUINAPRIL [Concomitant]
     Indication: BLOOD PRESSURE ABNORMAL
     Dosage: UNK, DAILY
  2. LYRICA [Suspect]
     Indication: FIBROMYALGIA
     Dosage: 25 MG,DAILY
     Route: 048

REACTIONS (1)
  - MUSCLE SPASMS [None]
